FAERS Safety Report 7796129 (Version 5)
Quarter: 2013Q1

REPORT INFORMATION
  Report Type: Spontaneous
  Country: US (occurrence: None)
  Receive Date: 20110112
  Receipt Date: 20121106
  Transmission Date: 20140127
  Serious: Yes (Hospitalization, Other)
  Sender: FDA-Public Use
  Company Number: JPI-P-013319

PATIENT
  Age: 68 Year
  Sex: Female

DRUGS (11)
  1. XYREM [Suspect]
     Indication: NARCOLEPSY
     Dosage: 8 GM (4 GM, 2 IN 1 D), ORAL 9GM (4.5 GM, 2 IN 1D), ORAL 4.5 GM (2.25 GM, 2 IN 1 D), ORAL
     Route: 048
     Dates: start: 20070320
  2. DEXTROAMPHETAMINE [Concomitant]
  3. ACETYLSALICYLIC ACID [Concomitant]
  4. ESCITALOPRAM [Concomitant]
  5. ESTRADIOL [Concomitant]
  6. DILTIAZEM [Concomitant]
  7. ROSUVASTATIN [Concomitant]
  8. RANITIDINE [Concomitant]
  9. OMEPRAZOLE [Concomitant]
  10. GABAPENTIN [Concomitant]
  11. HYDROMORPHONE [Concomitant]

REACTIONS (14)
  - Fall [None]
  - Feeling abnormal [None]
  - Memory impairment [None]
  - Hypertension [None]
  - Neuropathy peripheral [None]
  - Feeling abnormal [None]
  - Asthenia [None]
  - Condition aggravated [None]
  - Amnesia [None]
  - Spinal column stenosis [None]
  - Intervertebral disc degeneration [None]
  - Barrett^s oesophagus [None]
  - Scoliosis [None]
  - Feeling abnormal [None]
